FAERS Safety Report 17358942 (Version 2)
Quarter: 2020Q1

REPORT INFORMATION
  Report Type: Spontaneous
  Country: US (occurrence: US)
  Receive Date: 20200202
  Receipt Date: 20200310
  Transmission Date: 20200409
  Serious: Yes (Other)
  Sender: FDA-Public Use
  Company Number: US-BEH-2020112191

PATIENT
  Age: 9 Year
  Sex: Male
  Weight: 47 kg

DRUGS (2)
  1. HAEGARDA [Suspect]
     Active Substance: HUMAN C1-ESTERASE INHIBITOR
     Dosage: UNK
     Route: 058
     Dates: start: 20191212
  2. HAEGARDA [Suspect]
     Active Substance: HUMAN C1-ESTERASE INHIBITOR
     Dosage: 3000 INTERNATIONAL UNIT, OTHER
     Route: 058
     Dates: start: 202001

REACTIONS (7)
  - Swelling [Unknown]
  - Peripheral swelling [Unknown]
  - Erythema [Unknown]
  - Joint swelling [Unknown]
  - Fatigue [Unknown]
  - Hereditary angioedema [Unknown]
  - Unevaluable event [Unknown]

NARRATIVE: CASE EVENT DATE: 20200121
